FAERS Safety Report 5859860-X (Version None)
Quarter: 2008Q3

REPORT INFORMATION
  Report Type: 
  Country: None (occurrence: None)
  Receive Date: 20080827
  Receipt Date: 20080820
  Transmission Date: 20090109
  Serious: Yes (Life-Threatening, Hospitalization)
  Sender: FDA-Public Use
  Company Number: US-NOVOPROD-278304

PATIENT
  Sex: Female
  Weight: 46 kg

DRUGS (1)
  1. NORDITROPIN NORDIFLEX [Suspect]
     Indication: HAEMODIALYSIS
     Dosage: .9 MG, QD
     Route: 058
     Dates: start: 20080625, end: 20080808

REACTIONS (1)
  - UNRESPONSIVE TO STIMULI [None]
